FAERS Safety Report 11215569 (Version 1)
Quarter: 2015Q2

REPORT INFORMATION
  Report Type: Spontaneous
  Country: FR (occurrence: FR)
  Receive Date: 20150624
  Receipt Date: 20150624
  Transmission Date: 20150821
  Serious: Yes (Death)
  Sender: FDA-Public Use
  Company Number: FR-CIPLA LTD.-2015FR05041

PATIENT

DRUGS (2)
  1. OXALIPLATIN. [Suspect]
     Active Substance: OXALIPLATIN
     Indication: THYROID CANCER
     Dosage: 100 MG/M2, 2-H INFUSION, 5 CYCLES
  2. GEMCITABINE [Suspect]
     Active Substance: GEMCITABINE\GEMCITABINE HYDROCHLORIDE
     Indication: THYROID CANCER
     Dosage: 1000 MG/M2 ON DAY 1, 30-MIN INFUSION, 5 CYCLES

REACTIONS (1)
  - Obstructive airways disorder [Fatal]
